FAERS Safety Report 4389650-9 (Version None)
Quarter: 2004Q2

REPORT INFORMATION
  Report Type: 
  Country: None (occurrence: None)
  Receive Date: 20040629
  Receipt Date: 20040414
  Transmission Date: 20050107
  Serious: Yes (Other)
  Sender: FDA-Public Use
  Company Number: US-JNJFOC-20040403310

PATIENT
  Age: 63 Year
  Sex: Female

DRUGS (15)
  1. DURAGESIC [Suspect]
     Dosage: 25 UG/HR, 1 IN 72 HOUR, TRANSDERMAL
     Route: 062
     Dates: start: 20040406
  2. HYDROCODONE BITARTRATE [Suspect]
  3. SOMA [Suspect]
  4. LEVAQUIN [Concomitant]
  5. NEURONTIN [Concomitant]
  6. BUSPAR [Concomitant]
  7. EVISTA [Concomitant]
  8. FOSAMAX [Concomitant]
  9. TOPROL-XL [Concomitant]
  10. EFFEXOR XR [Concomitant]
  11. HUMALOG [Concomitant]
  12. PLAVIX [Concomitant]
  13. NORVASC [Concomitant]
  14. LIPITOR [Concomitant]
  15. FOLTX (ALL OTHER THERAPEUTIC PRODUCTS) [Concomitant]

REACTIONS (1)
  - COMA [None]
